FAERS Safety Report 6703799-4 (Version None)
Quarter: 2010Q2

REPORT INFORMATION
  Report Type: 
  Country: None (occurrence: None)
  Receive Date: 20100430
  Receipt Date: 20100402
  Transmission Date: 20101027
  Serious: Yes (Hospitalization, Other)
  Sender: FDA-Public Use
  Company Number: US-ROCHE-676375

PATIENT
  Sex: Female
  Weight: 52.8 kg

DRUGS (5)
  1. BEVACIZUMAB [Suspect]
     Indication: GLIOBLASTOMA MULTIFORME
     Dosage: 30-90 MIN ON DAY 1 OF WKS 4 AND 6, ON DAYS 1 AND 15.
     Route: 042
     Dates: start: 20090928
  2. BEVACIZUMAB [Suspect]
     Dosage: 30-90 MIN AT BEGINNING OF WEEK 2
     Route: 042
  3. BEVACIZUMAB [Suspect]
     Dosage: 30-90 MIN ON DAYS 1 AND 15; TOTAL DOSE 528 MG
     Route: 042
  4. TEMOZOLOMIDE [Suspect]
     Indication: GLIOBLASTOMA
     Route: 048
     Dates: start: 20090928
  5. TEMOZOLOMIDE [Suspect]
     Dosage: DOSE 150 - 200 MG/M2 ON DAYS 1-5; TOTAL DOSE: 1000 MG
     Route: 048
     Dates: end: 20091211

REACTIONS (8)
  - ALANINE AMINOTRANSFERASE INCREASED [None]
  - ASPARTATE AMINOTRANSFERASE INCREASED [None]
  - CEREBRAL ISCHAEMIA [None]
  - CONFUSIONAL STATE [None]
  - FRACTURE [None]
  - LYMPHOPENIA [None]
  - PLATELET COUNT DECREASED [None]
  - RHINITIS [None]
